FAERS Safety Report 9524453 (Version 2)
Quarter: 2013Q4

REPORT INFORMATION
  Report Type: Spontaneous
  Country: US (occurrence: US)
  Receive Date: 20130916
  Receipt Date: 20131022
  Transmission Date: 20140711
  Serious: No
  Sender: FDA-Public Use
  Company Number: US-PFIZER INC-2013261447

PATIENT
  Age: 55 Year
  Sex: Female

DRUGS (2)
  1. GLUCOTROL [Suspect]
     Dosage: 5 MG, 2X/DAY (BID)
  2. CELEBREX [Concomitant]
     Dosage: 200 MG, 1X/DAY (DAILY)

REACTIONS (2)
  - Arthritis [Unknown]
  - Impaired work ability [Unknown]
